FAERS Safety Report 6193643-9 (Version None)
Quarter: 2009Q2

REPORT INFORMATION
  Report Type: 
  Country: None (occurrence: None)
  Receive Date: 20090518
  Receipt Date: 20090330
  Transmission Date: 20091009
  Serious: No
  Sender: FDA-Public Use
  Company Number: US-BAYER-200911190BCC

PATIENT
  Age: 14 Year
  Sex: Female

DRUGS (1)
  1. ALEVE [Suspect]
     Indication: MIGRAINE
     Dosage: TOTAL DAILY DOSE: 2200 MG  UNIT DOSE: 220 MG
     Route: 048

REACTIONS (1)
  - NO ADVERSE EVENT [None]
